FAERS Safety Report 20383300 (Version 1)
Quarter: 2022Q1

REPORT INFORMATION
  Report Type: Spontaneous
  Country: CN (occurrence: CN)
  Receive Date: 20220127
  Receipt Date: 20220127
  Transmission Date: 20220423
  Serious: Yes (Other)
  Sender: FDA-Public Use
  Company Number: CN-PFIZER INC-202200116601

PATIENT
  Age: 82 Year
  Sex: Male

DRUGS (1)
  1. TYGACIL [Suspect]
     Active Substance: TIGECYCLINE
     Dosage: UNK
     Dates: start: 20220112, end: 20220116

REACTIONS (3)
  - Myelosuppression [Unknown]
  - Blood disorder [Unknown]
  - Platelet count decreased [Unknown]
